FAERS Safety Report 14909921 (Version 2)
Quarter: 2018Q2

REPORT INFORMATION
  Report Type: Report from Study
  Country: CA (occurrence: CA)
  Receive Date: 20180517
  Receipt Date: 20180618
  Transmission Date: 20180711
  Serious: Yes (Death)
  Sender: FDA-Public Use
  Company Number: CA-HLSUS-2018-CA-000757

PATIENT
  Age: 70 Year
  Sex: Male

DRUGS (9)
  1. TRAZODONE [Concomitant]
     Active Substance: TRAZODONE HYDROCHLORIDE
     Dosage: 50 MG AT BEDTIME
     Route: 048
  2. CLONAZEPAM. [Concomitant]
     Active Substance: CLONAZEPAM
     Dosage: 0.5 MG AT BEDTIME
     Route: 048
  3. CLOZARIL [Suspect]
     Active Substance: CLOZAPINE
     Dosage: 62.5 MG TWICE A DAY
     Route: 048
     Dates: start: 20140403, end: 20180504
  4. VITAMIN D [Concomitant]
     Active Substance: CHOLECALCIFEROL
     Dosage: 2000 IU ONCE A DAY
     Route: 048
  5. LEVOCARBIDOPA 100/25 [Concomitant]
     Dosage: ONE TABLET BID
  6. PREVACID [Concomitant]
     Active Substance: LANSOPRAZOLE
     Dosage: 30 MG EVERY MORNING
     Route: 048
  7. BUTRANS [Concomitant]
     Active Substance: BUPRENORPHINE
     Dosage: 5 MG ONCE A WEEK
  8. PROLIA [Concomitant]
     Active Substance: DENOSUMAB
     Dosage: 60 MG EVERY 6 MONTHS
     Route: 058
  9. ZOLOFT [Concomitant]
     Active Substance: SERTRALINE HYDROCHLORIDE
     Dosage: 100 MG AT BEDTIME
     Route: 048

REACTIONS (2)
  - Dementia with Lewy bodies [Fatal]
  - Parkinson^s disease [Fatal]
